FAERS Safety Report 21756113 (Version 1)
Quarter: 2022Q4

REPORT INFORMATION
  Report Type: Spontaneous
  Country: CA (occurrence: CA)
  Receive Date: 20221220
  Receipt Date: 20221220
  Transmission Date: 20230112
  Serious: Yes (Other)
  Sender: FDA-Public Use
  Company Number: CA-PFIZER INC-202201328410

PATIENT
  Age: 45 Year
  Sex: Female

DRUGS (3)
  1. ABRILADA [Suspect]
     Active Substance: ADALIMUMAB-AFZB
     Dosage: 160 MG, THEN 160 MG NEXT WEEK, THEN 80 MG THE WEEK AFTER, AND THEN 40 MG WEEKLY.
     Route: 058
     Dates: start: 20210325
  2. ABRILADA [Suspect]
     Active Substance: ADALIMUMAB-AFZB
     Dosage: 160 MG, THEN 160 MG NEXT WEEK, THEN 80 MG THE WEEK AFTER, AND THEN 40 MG WEEKLY.
     Route: 058
     Dates: start: 20221129
  3. ABRILADA [Suspect]
     Active Substance: ADALIMUMAB-AFZB
     Dosage: 160 MG, THEN 160 MG NEXT WEEK, THEN 80 MG THE WEEK AFTER, AND THEN 40 MG WEEKLY.
     Route: 058
     Dates: start: 20221201

REACTIONS (5)
  - Sinusitis bacterial [Not Recovered/Not Resolved]
  - Off label use [Unknown]
  - Incorrect dose administered [Unknown]
  - Device leakage [Unknown]
  - Device malfunction [Unknown]

NARRATIVE: CASE EVENT DATE: 20220101
